FAERS Safety Report 11165296 (Version 1)
Quarter: 2015Q2

REPORT INFORMATION
  Report Type: Spontaneous
  Country: FR (occurrence: FR)
  Receive Date: 20150604
  Receipt Date: 20150604
  Transmission Date: 20150821
  Serious: Yes (Hospitalization)
  Sender: FDA-Public Use
  Company Number: FR-BAXTER-2015BAX028493

PATIENT
  Age: 81 Year
  Sex: Female

DRUGS (3)
  1. BICART 720 [Suspect]
     Active Substance: SODIUM BICARBONATE
     Indication: HAEMODIALYSIS
     Route: 010
     Dates: start: 20150526
  2. SOLUTION INJECTABLE DE CHLORURE DE SODIUM ? 0.9 POUR CENT BAXTER, SOLU [Suspect]
     Active Substance: SODIUM CHLORIDE
     Indication: HAEMODIALYSIS
     Route: 065
     Dates: start: 20150526
  3. HEPARIN CHOAY [Suspect]
     Active Substance: HEPARIN SODIUM
     Indication: HAEMODIALYSIS
     Route: 065
     Dates: start: 20150525

REACTIONS (4)
  - Malaise [Unknown]
  - Respiratory arrest [Unknown]
  - Cardiac arrest [Unknown]
  - Loss of consciousness [Unknown]

NARRATIVE: CASE EVENT DATE: 20150526
